FAERS Safety Report 8800853 (Version 4)
Quarter: 2014Q1

REPORT INFORMATION
  Report Type: Spontaneous
  Country: AU (occurrence: AU)
  Receive Date: 20120921
  Receipt Date: 20140227
  Transmission Date: 20141002
  Serious: Yes (Death, Hospitalization, Other)
  Sender: FDA-Public Use
  Company Number: AU-ACTELION-A-CH2012-71302

PATIENT
  Age: 48 Year
  Sex: Male
  Weight: 80 kg

DRUGS (5)
  1. TRACLEER [Suspect]
     Indication: PULMONARY ARTERIAL HYPERTENSION
     Dosage: 62.5 MG, BID
     Route: 048
     Dates: start: 2012, end: 20120917
  2. TRACLEER [Suspect]
     Dosage: 125 MG, BID
     Route: 048
     Dates: start: 20120918
  3. SILDENAFIL [Concomitant]
  4. LASIX [Concomitant]
  5. ALDACTONE [Concomitant]

REACTIONS (6)
  - Pulmonary arterial hypertension [Fatal]
  - Disease progression [Fatal]
  - Exercise tolerance decreased [Fatal]
  - Pulmonary arterial pressure increased [Fatal]
  - Cardiomegaly [Fatal]
  - Tricuspid valve incompetence [Unknown]
